FAERS Safety Report 10380725 (Version 2)
Quarter: 2014Q3

REPORT INFORMATION
  Report Type: Spontaneous
  Country: US (occurrence: None)
  Receive Date: 20140808
  Receipt Date: 20140814
  Transmission Date: 20150326
  Serious: Yes (Life-Threatening)
  Sender: FDA-Public Use
  Company Number: FK201403138

PATIENT
  Age: 64 Year
  Sex: Male

DRUGS (14)
  1. PHYSIOTENS [Concomitant]
     Active Substance: MOXONIDINE
  2. SPIRIVA [Concomitant]
     Active Substance: TIOTROPIUM BROMIDE MONOHYDRATE
  3. MIANSERINE [Concomitant]
     Active Substance: MIANSERIN HYDROCHLORIDE
  4. LOXEN [Suspect]
     Active Substance: NICARDIPINE HYDROCHLORIDE
     Indication: PRODUCT USED FOR UNKNOWN INDICATION
     Route: 042
  5. METFORMINE [Concomitant]
     Active Substance: METFORMIN HYDROCHLORIDE
  6. CELOCURINE [Suspect]
     Active Substance: SUCCINYLCHOLINE CHLORIDE
     Indication: INDUCTION OF ANAESTHESIA
     Route: 042
     Dates: start: 20140626, end: 20140626
  7. MECIR [Concomitant]
     Active Substance: TAMSULOSIN HYDROCHLORIDE
  8. SUFENTANIL MERCK (SUFENTANIL CITRATE) (SUFENTANIL CITRATE) [Suspect]
     Active Substance: SUFENTANIL
     Indication: INDUCTION AND MAINTENANCE OF ANAESTHESIA
     Route: 042
     Dates: start: 20140626, end: 20140626
  9. PARACETAMOL [Suspect]
     Active Substance: ACETAMINOPHEN
     Indication: PRODUCT USED FOR UNKNOWN INDICATION
     Route: 042
     Dates: start: 20140626, end: 20140626
  10. CONTRAMAL [Suspect]
     Active Substance: TRAMADOL HYDROCHLORIDE
     Indication: PRODUCT USED FOR UNKNOWN INDICATION
     Route: 042
     Dates: start: 20140626, end: 20140626
  11. CRESTOR [Concomitant]
     Active Substance: ROSUVASTATIN CALCIUM
  12. ALLOPURINOL. [Concomitant]
     Active Substance: ALLOPURINOL
  13. PARIET (RABEPRAZOLE SODIUM) (20 MG, GASTRO-RESISTANT TABLET) (RABEPRAZOLE SODIUM) [Concomitant]
     Active Substance: RABEPRAZOLE SODIUM
  14. PROPOFOL. [Suspect]
     Active Substance: PROPOFOL
     Indication: INDUCTION OF ANAESTHESIA
     Route: 042
     Dates: start: 20140626, end: 20140626

REACTIONS (8)
  - Localised oedema [None]
  - Laryngeal dyspnoea [None]
  - Post procedural complication [None]
  - Blood pressure decreased [None]
  - Angioedema [None]
  - Blood pressure increased [None]
  - Tongue oedema [None]
  - Cervix oedema [None]

NARRATIVE: CASE EVENT DATE: 20140626
